FAERS Safety Report 8554199-6 (Version None)
Quarter: 2012Q3

REPORT INFORMATION
  Report Type: 
  Country: None (occurrence: None)
  Receive Date: 20120731
  Receipt Date: 20120727
  Transmission Date: 20120928
  Serious: Yes (Other)
  Sender: FDA-Public Use
  Company Number: FR-ELI_LILLY_AND_COMPANY-FR201207008439

PATIENT
  Sex: Female

DRUGS (4)
  1. AROMASIN [Concomitant]
  2. GEMZAR [Suspect]
     Indication: BREAST CANCER
     Dosage: 1283 MG, Q WEEKS (3 WEEKS/4)
     Dates: start: 20120401
  3. ZOMETA [Concomitant]
  4. LEVOTHYROXINE SODIUM [Concomitant]

REACTIONS (4)
  - ERYTHEMA [None]
  - VEIN PAIN [None]
  - INDURATION [None]
  - PHLEBITIS [None]
